FAERS Safety Report 13331421 (Version 1)
Quarter: 2017Q1

REPORT INFORMATION
  Report Type: Spontaneous
  Country: US (occurrence: US)
  Receive Date: 20170313
  Receipt Date: 20170313
  Transmission Date: 20170428
  Serious: No
  Sender: FDA-Public Use
  Company Number: None

PATIENT
  Age: 11 Year
  Sex: Male
  Weight: 33.75 kg

DRUGS (1)
  1. GUANFACINE ER 2MG [Suspect]
     Active Substance: GUANFACINE
     Indication: ATTENTION DEFICIT/HYPERACTIVITY DISORDER
     Dosage: ?          QUANTITY:30 TABLET(S);?
     Route: 048
     Dates: start: 20170107, end: 20170313

REACTIONS (6)
  - Educational problem [None]
  - Irritability [None]
  - Emotional disorder [None]
  - Drug ineffective [None]
  - Product substitution issue [None]
  - Depressed mood [None]

NARRATIVE: CASE EVENT DATE: 20170207
